FAERS Safety Report 4536559-3 (Version None)
Quarter: 2004Q4

REPORT INFORMATION
  Report Type: 
  Country: None (occurrence: None)
  Receive Date: 20041223
  Receipt Date: 20040616
  Transmission Date: 20050328
  Serious: No
  Sender: FDA-Public Use
  Company Number: US-GLAXOSMITHKLINE-A0514882A

PATIENT
  Age: 67 Year
  Sex: Female

DRUGS (6)
  1. TAGAMET [Suspect]
     Indication: DUODENAL ULCER
     Dosage: 400MG TWICE PER DAY
     Route: 048
     Dates: start: 20040601
  2. COREG [Concomitant]
  3. ASPIRIN [Concomitant]
  4. FUROSEMIDE [Concomitant]
  5. CELEBREX [Concomitant]
  6. HYZAAR [Concomitant]

REACTIONS (3)
  - DYSGEUSIA [None]
  - INSOMNIA [None]
  - NAUSEA [None]
